FAERS Safety Report 8214816-7 (Version None)
Quarter: 2012Q1

REPORT INFORMATION
  Report Type: 
  Country: None (occurrence: None)
  Receive Date: 20120316
  Receipt Date: 20120309
  Transmission Date: 20120608
  Serious: Yes (Hospitalization)
  Sender: FDA-Public Use
  Company Number: DE-JNJFOC-20120304217

PATIENT
  Age: 72 Year
  Sex: Male

DRUGS (7)
  1. LISINOPRIL [Concomitant]
  2. VERAPAMIL HYDROCHLORIDE [Concomitant]
  3. ISONIAZID [Concomitant]
  4. STELARA [Suspect]
     Indication: PSORIASIS
     Route: 058
     Dates: start: 20120210, end: 20120210
  5. STELARA [Suspect]
     Route: 058
     Dates: start: 20120113, end: 20120113
  6. AMPHOTERICIN B [Concomitant]
     Dates: start: 20120116, end: 20120226
  7. ASPIRIN [Concomitant]

REACTIONS (2)
  - BOWEL MOVEMENT IRREGULARITY [None]
  - GASTROINTESTINAL CANDIDIASIS [None]
